FAERS Safety Report 8620178-3 (Version None)
Quarter: 2012Q3

REPORT INFORMATION
  Report Type: 
  Country: None (occurrence: None)
  Receive Date: 20120824
  Receipt Date: 20120820
  Transmission Date: 20120928
  Serious: Yes (Other)
  Sender: FDA-Public Use
  Company Number: US-ALEXION-A201201410

PATIENT
  Sex: Female
  Weight: 73.1 kg

DRUGS (1)
  1. SOLIRIS [Suspect]
     Indication: PAROXYSMAL NOCTURNAL HAEMOGLOBINURIA
     Dosage: 600 MG
     Route: 042
     Dates: start: 20111111

REACTIONS (4)
  - NAUSEA [None]
  - HEADACHE [None]
  - PNEUMONIA [None]
  - FATIGUE [None]
